FAERS Safety Report 16513268 (Version 1)
Quarter: 2019Q3

REPORT INFORMATION
  Report Type: Spontaneous
  Country: FR (occurrence: FR)
  Receive Date: 20190701
  Receipt Date: 20190701
  Transmission Date: 20191004
  Serious: Yes (Other)
  Sender: FDA-Public Use
  Company Number: PHHY2019FR148514

PATIENT

DRUGS (16)
  1. ROWASA [Suspect]
     Active Substance: MESALAMINE
     Indication: PRODUCT USED FOR UNKNOWN INDICATION
     Dosage: 2 G, QD
     Route: 064
  2. METHYLPREDNISOLONE. [Suspect]
     Active Substance: METHYLPREDNISOLONE
     Indication: PRODUCT USED FOR UNKNOWN INDICATION
     Dosage: MATERNAL DOSE: 0.8 MG/KG, UNK
     Route: 064
     Dates: start: 20150327, end: 20150331
  3. LOVENOX [Suspect]
     Active Substance: ENOXAPARIN SODIUM
     Indication: PRODUCT USED FOR UNKNOWN INDICATION
     Dosage: MATERNAL DOSE: 0.4 ML, QD
     Route: 064
     Dates: start: 20150329
  4. CIPROFLOXACIN. [Suspect]
     Active Substance: CIPROFLOXACIN
     Dosage: UNK
     Route: 065
     Dates: start: 20150403
  5. CIPROFLOXACIN. [Suspect]
     Active Substance: CIPROFLOXACIN
     Dosage: UNK
     Route: 065
     Dates: start: 20150408
  6. TARDYFERON [Suspect]
     Active Substance: FERROUS SULFATE
     Indication: IRON DEFICIENCY
     Dosage: MATERNAL DOSE: 80 MG, QD
     Route: 064
     Dates: start: 20150506
  7. DIFFU-K [Suspect]
     Active Substance: POTASSIUM CHLORIDE
     Indication: PRODUCT USED FOR UNKNOWN INDICATION
     Dosage: MATERNAL DOSE: 2 DF, 3X/DAY (TID)
     Route: 064
     Dates: end: 201505
  8. TARDYFERON [Suspect]
     Active Substance: FERROUS SULFATE
     Dosage: MATERNAL DOSE: 80 MG, QD
     Route: 064
     Dates: start: 20150723
  9. CALCIDOSE (CALCIUM CARBONATE) [Suspect]
     Active Substance: CALCIUM CARBONATE
     Indication: PRODUCT USED FOR UNKNOWN INDICATION
     Dosage: MATERNAL DOSE: 500 MG, QD
     Route: 064
  10. LOVENOX [Suspect]
     Active Substance: ENOXAPARIN SODIUM
     Dosage: MATERNAL DOSE: 0.4 ML, QD
     Route: 064
     Dates: start: 20150416
  11. DOMPERIDONE [Suspect]
     Active Substance: DOMPERIDONE
     Indication: PRODUCT USED FOR UNKNOWN INDICATION
     Dosage: 10 MG, QD
     Route: 064
  12. SPECIAFOLDINE [Suspect]
     Active Substance: FOLIC ACID
     Indication: PRODUCT USED FOR UNKNOWN INDICATION
     Dosage: 5 MG, QD
     Route: 065
  13. PARACETAMOL [Concomitant]
     Active Substance: ACETAMINOPHEN
     Indication: PRODUCT USED FOR UNKNOWN INDICATION
     Dosage: MATERNAL DOSE: 4 G, QD (1 G, 4X/DAY (QID))
     Route: 064
  14. REMICADE [Suspect]
     Active Substance: INFLIXIMAB
     Indication: PRODUCT USED FOR UNKNOWN INDICATION
     Dosage: MATERNAL DOSE: 5 MG/KG, UNK (4 CYCLES RECEIVED)
     Route: 064
  15. DIFFU-K [Suspect]
     Active Substance: POTASSIUM CHLORIDE
     Dosage: MATERNAL DOSE: 3 DF, 3X/DAY (TID)
     Route: 064
     Dates: start: 201505, end: 20150723
  16. SPASFON (PHLOROGLUCINOL) [Suspect]
     Active Substance: PHLOROGLUCINOL
     Indication: PRODUCT USED FOR UNKNOWN INDICATION
     Dosage: MATERNAL DOSE: UNK (ON DEMAND)
     Route: 064

REACTIONS (2)
  - Foetal exposure during pregnancy [Unknown]
  - Premature baby [Unknown]
